FAERS Safety Report 17179759 (Version 2)
Quarter: 2022Q2

REPORT INFORMATION
  Report Type: Spontaneous
  Country: FR (occurrence: FR)
  Receive Date: 20191220
  Receipt Date: 20220502
  Transmission Date: 20220720
  Serious: Yes (Hospitalization, Other)
  Sender: FDA-Public Use
  Company Number: FR-SUN PHARMACEUTICAL INDUSTRIES LTD-2019RR-231526

PATIENT
  Age: 53 Year
  Sex: Male
  Weight: 43 kg

DRUGS (4)
  1. METFORMIN [Suspect]
     Active Substance: METFORMIN HYDROCHLORIDE
     Indication: Diabetes mellitus
     Dosage: 1000 MILLIGRAMS, DAILY
     Route: 048
  2. URAPIDIL [Suspect]
     Active Substance: URAPIDIL
     Indication: Hypertension
     Dosage: 2 DOSAGE FORMS, DAILY
     Route: 048
     Dates: start: 20191023
  3. BISOPROLOL FUMARATE [Suspect]
     Active Substance: BISOPROLOL FUMARATE
     Indication: Hypertension
     Dosage: 10 MILLIGRAMS, DAILY
     Route: 048
     Dates: start: 20191023
  4. KEPPRA [Suspect]
     Active Substance: LEVETIRACETAM
     Indication: Clonus
     Dosage: 2 DOSAGE FORMS, DAILY
     Route: 048
     Dates: start: 20191023, end: 20191120

REACTIONS (2)
  - Neutropenia [Not Recovered/Not Resolved]
  - Leukopenia [Not Recovered/Not Resolved]

NARRATIVE: CASE EVENT DATE: 20191026
